FAERS Safety Report 9392243 (Version 1)
Quarter: 2013Q3

REPORT INFORMATION
  Report Type: Report from Study
  Country: RS (occurrence: RS)
  Receive Date: 20130710
  Receipt Date: 20130710
  Transmission Date: 20140515
  Serious: Yes (Death)
  Sender: FDA-Public Use
  Company Number: RS-ROCHE-1244835

PATIENT
  Sex: 0

DRUGS (2)
  1. TRETINOIN [Suspect]
     Indication: ACUTE MYELOID LEUKAEMIA
     Route: 065
  2. IDARUBICIN [Suspect]
     Indication: ACUTE MYELOID LEUKAEMIA
     Route: 065

REACTIONS (4)
  - Sepsis [Fatal]
  - Haemorrhage [Fatal]
  - Tumour lysis syndrome [Fatal]
  - Herpes zoster [Fatal]
